FAERS Safety Report 4992862-4 (Version None)
Quarter: 2006Q1

REPORT INFORMATION
  Report Type: 
  Country: None (occurrence: None)
  Receive Date: 20060315
  Receipt Date: 20060119
  Transmission Date: 20060701
  Serious: No
  Sender: FDA-Public Use
  Company Number: 2006RL000020

PATIENT
  Age: 50 Year
  Sex: Female
  Weight: 50.8029 kg

DRUGS (5)
  1. OMACOR [Suspect]
     Indication: BLOOD TRIGLYCERIDES INCREASED
     Dosage: 1 GM;QD;PO
     Route: 048
     Dates: start: 20051201
  2. ZIAC [Concomitant]
  3. METFORMIN [Concomitant]
  4. PREVACID [Concomitant]
  5. LEVOTHYROXINE SODIUM [Concomitant]

REACTIONS (3)
  - ALOPECIA [None]
  - NAIL DISORDER [None]
  - PRURITUS [None]
